FAERS Safety Report 8050288-3 (Version None)
Quarter: 2012Q1

REPORT INFORMATION
  Report Type: 
  Country: None (occurrence: None)
  Receive Date: 20120117
  Receipt Date: 20120111
  Transmission Date: 20120608
  Serious: No
  Sender: FDA-Public Use
  Company Number: US-B.I. PHARMACEUTICALS,INC./RIDGEFIELD-2012-BP-00658BP

PATIENT
  Age: 12 Year
  Sex: Male

DRUGS (5)
  1. ALBUTEROL [Concomitant]
     Indication: ASTHMA
  2. ZITHROMAX [Concomitant]
     Indication: EAR INFECTION
  3. ZANTAC [Suspect]
     Indication: DYSPEPSIA
     Dosage: 150 MG
     Route: 048
     Dates: start: 20120111, end: 20120111
  4. ZANTAC [Suspect]
  5. CIPRODEX [Concomitant]
     Indication: EAR INFECTION

REACTIONS (2)
  - RASH [None]
  - VOMITING [None]
